FAERS Safety Report 5877255-X (Version None)
Quarter: 2008Q3

REPORT INFORMATION
  Report Type: 
  Country: None (occurrence: None)
  Receive Date: 20080828
  Receipt Date: 20080819
  Transmission Date: 20090109
  Serious: Yes (Other)
  Sender: FDA-Public Use
  Company Number: AEUSA200800181

PATIENT
  Age: 94 Year
  Sex: Female
  Weight: 74.3899 kg

DRUGS (1)
  1. GAMASTAN [Suspect]
     Indication: ANTIVIRAL PROPHYLAXIS
     Dosage: 1.5 ML;1X; IM
     Route: 030
     Dates: start: 20080709, end: 20080709

REACTIONS (7)
  - CHRONIC OBSTRUCTIVE PULMONARY DISEASE [None]
  - CONFUSIONAL STATE [None]
  - DIARRHOEA [None]
  - PULMONARY HYPERTENSION [None]
  - RESPIRATORY DISORDER [None]
  - SYNCOPE [None]
  - VOMITING [None]
